FAERS Safety Report 4927806-4 (Version None)
Quarter: 2006Q1

REPORT INFORMATION
  Report Type: 
  Country: None (occurrence: None)
  Receive Date: 20060222
  Receipt Date: 20060208
  Transmission Date: 20060701
  Serious: Yes (Hospitalization)
  Sender: FDA-Public Use
  Company Number: 2005SP004519

PATIENT
  Age: 49 Year
  Sex: Female
  Weight: 86.1834 kg

DRUGS (12)
  1. XOPENEX [Suspect]
     Dosage: INHALATION
     Route: 055
     Dates: start: 19900101
  2. ALBUTEROL [Suspect]
     Indication: DYSPNOEA
  3. ADVAIR DISKUS 100/50 [Concomitant]
  4. ACCOLATE [Concomitant]
  5. TILADE [Concomitant]
  6. PREDNISONE [Concomitant]
  7. MIRAPEX [Concomitant]
  8. SINGULAIR [Concomitant]
  9. ATROVENT [Concomitant]
  10. ULTRAM [Concomitant]
  11. NEURONTIN [Concomitant]
  12. ASTELIN [Concomitant]

REACTIONS (18)
  - AORTIC VALVE INCOMPETENCE [None]
  - BLOOD CHLORIDE ABNORMAL [None]
  - BLOOD GLUCOSE ABNORMAL [None]
  - BLOOD TEST ABNORMAL [None]
  - BLOOD UREA ABNORMAL [None]
  - CHEST PAIN [None]
  - ELECTROCARDIOGRAM ST SEGMENT ELEVATION [None]
  - HEPATIC FUNCTION ABNORMAL [None]
  - LABORATORY TEST ABNORMAL [None]
  - MITRAL VALVE INCOMPETENCE [None]
  - PERICARDIAL EFFUSION [None]
  - PULMONARY ARTERIAL WEDGE PRESSURE INCREASED [None]
  - SLEEP DISORDER [None]
  - SNORING [None]
  - SOFT TISSUE DISORDER [None]
  - TRICUSPID VALVE INCOMPETENCE [None]
  - UPPER AIRWAY RESISTANCE SYNDROME [None]
  - URINE ANALYSIS ABNORMAL [None]
